FAERS Safety Report 23237471 (Version 1)
Quarter: 2023Q4

REPORT INFORMATION
  Report Type: Spontaneous
  Country: US (occurrence: US)
  Receive Date: 20231128
  Receipt Date: 20231128
  Transmission Date: 20240109
  Serious: No
  Sender: FDA-Public Use
  Company Number: US-009507513-2311USA001879

PATIENT
  Age: 83 Year
  Sex: Female

DRUGS (3)
  1. KEYTRUDA [Suspect]
     Active Substance: PEMBROLIZUMAB
     Indication: Nasopharyngeal cancer
     Dosage: 200 MILLIGRAM, Q3W
  2. BINIMETINIB;ENCORAFENIB [Concomitant]
     Indication: Cervix cancer metastatic
     Dosage: UNK
  3. LENVATINIB [Concomitant]
     Active Substance: LENVATINIB
     Indication: Cervix cancer metastatic
     Dosage: UNK

REACTIONS (2)
  - Oral lichenoid reaction [Unknown]
  - Dry mouth [Unknown]
